FAERS Safety Report 8186971 (Version 2)
Quarter: 2013Q1

REPORT INFORMATION
  Report Type: Spontaneous
  Country: US (occurrence: US)
  Receive Date: 20111018
  Receipt Date: 20130311
  Transmission Date: 20140127
  Serious: Yes (Death)
  Sender: FDA-Public Use
  Company Number: US-ASTRAZENECA-2011SE31554

PATIENT
  Age: 51 Year
  Sex: Male

DRUGS (2)
  1. SYMBICORT PMDI [Suspect]
     Dosage: 2 PUFFS BID
     Route: 055
  2. SYMBICORT PMDI [Suspect]
     Dosage: SOMETIMES TAKES 8 TO 10 PUFFS A DAY
     Route: 055

REACTIONS (5)
  - Death [Fatal]
  - Dyspnoea [Unknown]
  - Dyspnoea [Unknown]
  - Drug dose omission [Unknown]
  - Drug ineffective [Unknown]
